FAERS Safety Report 10649872 (Version 1)
Quarter: 2014Q4

REPORT INFORMATION
  Report Type: Spontaneous
  Country: US (occurrence: None)
  Receive Date: 20141205
  Receipt Date: 20141205
  Transmission Date: 20150529
  Serious: No
  Sender: FDA-Public Use
  Company Number: 163-POMAL-14085615

PATIENT
  Age: 73 Year
  Sex: Male
  Weight: 104.33 kg

DRUGS (3)
  1. DEXAMETHASONE. [Concomitant]
     Active Substance: DEXAMETHASONE
  2. POMALYST [Suspect]
     Active Substance: POMALIDOMIDE
     Indication: PLASMA CELL MYELOMA
     Dosage: 21 IN 28 D, PO
     Route: 048
     Dates: start: 20140626
  3. MILK OF MEGNESIA [Concomitant]

REACTIONS (3)
  - Diarrhoea [None]
  - Body height decreased [None]
  - Constipation [None]
